FAERS Safety Report 9581797 (Version 2)
Quarter: 2014Q4

REPORT INFORMATION
  Report Type: Spontaneous
  Country: PH (occurrence: PH)
  Receive Date: 20131002
  Receipt Date: 20141117
  Transmission Date: 20150529
  Serious: Yes (Other)
  Sender: FDA-Public Use
  Company Number: PH-ABBVIE-13P-128-1153238-00

PATIENT
  Age: 24 Year
  Sex: Male

DRUGS (5)
  1. ROCURONIUM [Concomitant]
     Active Substance: ROCURONIUM BROMIDE
     Indication: HYPOTONIA
     Dosage: 40 MG/1 DOSE
     Route: 042
     Dates: start: 20130930, end: 20130930
  2. FENTANYL. [Concomitant]
     Active Substance: FENTANYL
     Indication: ANALGESIC THERAPY
     Dosage: 75 MCGS/1 DOSE
     Route: 042
     Dates: start: 20130930, end: 20130930
  3. SEVORANE [Suspect]
     Active Substance: SEVOFLURANE
     Indication: GENERAL ANAESTHESIA
     Dosage: 8 MAC/15 MINUTES
     Route: 055
     Dates: start: 20130930, end: 20130930
  4. PROPOFOL. [Concomitant]
     Active Substance: PROPOFOL
     Indication: SEDATION
     Dosage: 100 MG/1DOSE
     Route: 042
     Dates: start: 20130930, end: 20130930
  5. PROPOFOL. [Concomitant]
     Active Substance: PROPOFOL
     Indication: GENERAL ANAESTHESIA

REACTIONS (4)
  - Tachycardia [Unknown]
  - Product odour abnormal [Unknown]
  - Unwanted awareness during anaesthesia [Recovered/Resolved]
  - Product solubility abnormal [Unknown]

NARRATIVE: CASE EVENT DATE: 20130930
